FAERS Safety Report 9824905 (Version 2)
Quarter: 2014Q1

REPORT INFORMATION
  Report Type: Spontaneous
  Country: US (occurrence: US)
  Receive Date: 20140117
  Receipt Date: 20140313
  Transmission Date: 20141002
  Serious: Yes (Hospitalization, Other)
  Sender: FDA-Public Use
  Company Number: US-BRISTOL-MYERS SQUIBB COMPANY-20030193

PATIENT
  Age: 63 Year
  Sex: Male

DRUGS (15)
  1. KOMBIGLYZE XR [Suspect]
     Indication: DIABETES MELLITUS
     Dosage: 1DF: 2.5+1000MG
     Route: 048
     Dates: start: 20130923, end: 20140108
  2. TRICOR [Suspect]
  3. HYDROCHLOROTHIAZIDE [Suspect]
     Dosage: ALSO TAKEN AS CONCOMITANT
  4. ALFUZOSIN [Concomitant]
  5. VITAMIN D3 [Concomitant]
  6. FLONASE [Concomitant]
  7. TESTOSTERONE [Concomitant]
  8. DICYCLOMINE [Concomitant]
  9. ACETYLSALICYLIC ACID [Concomitant]
  10. PEPCID [Concomitant]
  11. GLIPIZIDE [Concomitant]
  12. NILOTINIB [Concomitant]
  13. ALLOPURINOL [Concomitant]
  14. LEXAPRO [Concomitant]
  15. XYZAL [Concomitant]

REACTIONS (5)
  - Pancreatitis [Recovering/Resolving]
  - Pneumonia [Recovering/Resolving]
  - Cardiac failure congestive [Recovering/Resolving]
  - Pleural effusion [Recovering/Resolving]
  - Atrial fibrillation [Recovering/Resolving]
